FAERS Safety Report 5415947-7 (Version None)
Quarter: 2007Q3

REPORT INFORMATION
  Report Type: 
  Country: None (occurrence: None)
  Receive Date: 20070815
  Receipt Date: 20070802
  Transmission Date: 20080115
  Serious: Yes (Hospitalization, Other)
  Sender: FDA-Public Use
  Company Number: US-SHR-US-2007-015380

PATIENT
  Age: 58 Year
  Sex: Female
  Weight: 48.98 kg

DRUGS (7)
  1. BETASERON [Suspect]
     Indication: SECONDARY PROGRESSIVE MULTIPLE SCLEROSIS
     Dosage: 8 MIU, EVERY 2D
     Route: 058
     Dates: start: 20040729
  2. BETASERON [Suspect]
     Dosage: 8 MIU, EVERY 2D
     Route: 058
  3. LORAZEPAM [Concomitant]
  4. BACLOFEN [Concomitant]
  5. RISPERDAL [Concomitant]
  6. PANCREAS MEDICATION [Concomitant]
     Dosage: PANCREAS MEDICATION
  7. VONTROL [Concomitant]
     Indication: VERTIGO

REACTIONS (6)
  - ARTHRALGIA [None]
  - BALANCE DISORDER [None]
  - CLAVICLE FRACTURE [None]
  - CONTUSION [None]
  - DEPRESSION [None]
  - SECONDARY PROGRESSIVE MULTIPLE SCLEROSIS [None]
